FAERS Safety Report 4569723-8 (Version None)
Quarter: 2005Q1

REPORT INFORMATION
  Report Type: 
  Country: None (occurrence: None)
  Receive Date: 20050201
  Receipt Date: 20050119
  Transmission Date: 20050727
  Serious: Yes (Hospitalization, Other)
  Sender: FDA-Public Use
  Company Number: 2004103932

PATIENT
  Age: 69 Year
  Sex: Female
  Weight: 69 kg

DRUGS (8)
  1. SORTIS (ATORVASTATIN) [Suspect]
     Indication: ILL-DEFINED DISORDER
     Dosage: 20 MG (1 IN 1 D), ORAL
     Route: 048
     Dates: end: 20041025
  2. CARVEDILOL [Concomitant]
  3. MOLSIDOMINE (MILSIDOMINE) [Concomitant]
  4. FUROSEMIDE (FUROSEMIDE) [Concomitant]
  5. XIPAMIDE (XIPAMIDE) [Concomitant]
  6. LEVOTHYROXINE SODIUM (LEVORHYROXINE SODIUM) [Concomitant]
  7. ALLOPURINOL [Concomitant]
  8. AMIODARONE HCL [Concomitant]

REACTIONS (20)
  - ABNORMAL CHEST SOUND [None]
  - ASCITES [None]
  - BLOOD CREATININE INCREASED [None]
  - CAMPYLOBACTER GASTROENTERITIS [None]
  - CARDIOMEGALY [None]
  - COMPUTERISED TOMOGRAM ABNORMAL [None]
  - CONDITION AGGRAVATED [None]
  - CONGESTIVE CARDIOMYOPATHY [None]
  - DEPRESSION [None]
  - DIALYSIS [None]
  - DRY SKIN [None]
  - FATIGUE [None]
  - GENERAL PHYSICAL CONDITION ABNORMAL [None]
  - METASTASES TO LUNG [None]
  - NEOPLASM [None]
  - PLEURAL EFFUSION [None]
  - RENAL FAILURE [None]
  - RETCHING [None]
  - RHABDOMYOLYSIS [None]
  - WEIGHT DECREASED [None]
